FAERS Safety Report 8200778-5 (Version None)
Quarter: 2012Q1

REPORT INFORMATION
  Report Type: 
  Country: None (occurrence: None)
  Receive Date: 20120312
  Receipt Date: 20120305
  Transmission Date: 20120608
  Serious: Yes (Death, Hospitalization, Other)
  Sender: FDA-Public Use
  Company Number: MX-SANOFI-AVENTIS-2012SA015078

PATIENT
  Age: 75 Year
  Sex: Female

DRUGS (3)
  1. LANTUS [Suspect]
     Indication: TYPE 2 DIABETES MELLITUS
     Route: 058
     Dates: start: 20060101, end: 20110101
  2. ALL OTHER THERAPEUTIC PRODUCTS [Concomitant]
     Indication: BILIARY CIRRHOSIS
     Dates: end: 20110101
  3. ANTIHYPERTENSIVES [Concomitant]
     Dates: end: 20110101

REACTIONS (2)
  - BILIARY CIRRHOSIS [None]
  - HAEMORRHAGIC STROKE [None]
